FAERS Safety Report 7924013-8 (Version None)
Quarter: 2011Q4

REPORT INFORMATION
  Report Type: 
  Country: None (occurrence: None)
  Receive Date: 20111117
  Receipt Date: 20110211
  Transmission Date: 20120403
  Serious: No
  Sender: FDA-Public Use
  Company Number: US-AMGEN-USASP2011008213

PATIENT
  Age: 61 Year
  Sex: Female
  Weight: 65.76 kg

DRUGS (6)
  1. DIOVAN [Concomitant]
     Dosage: 80 MG, UNK
  2. REMIFEMIN                          /01456805/ [Concomitant]
     Dosage: 20 MG, UNK
  3. CALCIUM [Concomitant]
     Dosage: 600 MG, UNK
  4. ACTONEL [Concomitant]
     Dosage: 150 MG, UNK
  5. ENBREL [Suspect]
     Indication: PRODUCT USED FOR UNKNOWN INDICATION
     Dosage: 50 MG, QWK
  6. PREDNISONE TAB [Concomitant]
     Dosage: 5 MG, UNK

REACTIONS (1)
  - WOUND INFECTION [None]
